FAERS Safety Report 13463044 (Version 1)
Quarter: 2017Q2

REPORT INFORMATION
  Report Type: Spontaneous
  Country: FR (occurrence: FR)
  Receive Date: 20170420
  Receipt Date: 20170420
  Transmission Date: 20170830
  Serious: Yes (Death, Other)
  Sender: FDA-Public Use
  Company Number: FR-BAYER-2017-072444

PATIENT
  Age: 45 Year
  Sex: Female

DRUGS (1)
  1. STIVARGA [Suspect]
     Active Substance: REGORAFENIB
     Dosage: 160 MG, QD, 21DAYS / 28
     Dates: start: 2016

REACTIONS (3)
  - Asthenia [None]
  - Disease progression [None]
  - Death [Fatal]

NARRATIVE: CASE EVENT DATE: 2016
